FAERS Safety Report 18737655 (Version 3)
Quarter: 2021Q1

REPORT INFORMATION
  Report Type: Spontaneous
  Country: US (occurrence: US)
  Receive Date: 20210113
  Receipt Date: 20210312
  Transmission Date: 20210419
  Serious: Yes (Death, Hospitalization)
  Sender: FDA-Public Use
  Company Number: US-VIFOR (INTERNATIONAL) INC.-VIT-2021-00376

PATIENT
  Age: 58 Year
  Sex: Male
  Weight: 116 kg

DRUGS (17)
  1. HYDROCO/APAP [Concomitant]
     Active Substance: ACETAMINOPHEN\HYDROCODONE
  2. SEVELAMER [Concomitant]
     Active Substance: SEVELAMER
  3. ATORVASTATIN [Concomitant]
     Active Substance: ATORVASTATIN
  4. MIDORINE [Concomitant]
     Active Substance: MIDODRINE
  5. ALLOPURINOL. [Concomitant]
     Active Substance: ALLOPURINOL
  6. TESTOSTERONE. [Concomitant]
     Active Substance: TESTOSTERONE
  7. VALACYCLOVIR [Concomitant]
     Active Substance: VALACYCLOVIR HYDROCHLORIDE
  8. MODAFINIL. [Concomitant]
     Active Substance: MODAFINIL
  9. NORTRIPTYLIN [Concomitant]
     Active Substance: NORTRIPTYLINE
  10. PRAMIPEXOLE. [Concomitant]
     Active Substance: PRAMIPEXOLE
  11. VELTASSA [Suspect]
     Active Substance: PATIROMER
     Indication: HYPERKALAEMIA
     Route: 048
     Dates: start: 20170309
  12. AMITRIPTYLIN [Concomitant]
     Active Substance: AMITRIPTYLINE
  13. CLOTRIM/BETA [Concomitant]
  14. SMZ?TMP [Concomitant]
     Active Substance: SULFAMETHOXAZOLE\TRIMETHOPRIM
  15. NEPHRO VITE RX [Concomitant]
     Active Substance: ASCORBIC ACID\BIOTIN\CALCIUM PANTOTHENATE\CYANOCOBALAMIN\FOLIC ACID\NIACINAMIDE\PYRIDOXINE HYDROCHLORIDE\RIBOFLAVIN\THIAMINE MONONITRATE
  16. BUMETANIDE. [Concomitant]
     Active Substance: BUMETANIDE
  17. FINASTERIDE. [Concomitant]
     Active Substance: FINASTERIDE

REACTIONS (4)
  - Mental status changes [Unknown]
  - Off label use [Unknown]
  - Cardiac arrest [Fatal]
  - COVID-19 [Unknown]

NARRATIVE: CASE EVENT DATE: 20170309
